FAERS Safety Report 19810369 (Version 1)
Quarter: 2021Q3

REPORT INFORMATION
  Report Type: Spontaneous
  Country: CA (occurrence: CA)
  Receive Date: 20210909
  Receipt Date: 20210909
  Transmission Date: 20211014
  Serious: Yes (Disabling, Other)
  Sender: FDA-Public Use
  Company Number: CA-ACCORD-237941

PATIENT
  Age: 48 Year
  Sex: Male
  Weight: 83 kg

DRUGS (3)
  1. TEMAZEPAM. [Concomitant]
     Active Substance: TEMAZEPAM
  2. CLONAZEPAM. [Concomitant]
     Active Substance: CLONAZEPAM
  3. QUETIAPINE/QUETIAPINE FUMARATE [Suspect]
     Active Substance: QUETIAPINE FUMARATE
     Indication: ANXIETY
     Dosage: 1 EVERY 1 DAYS
     Route: 048

REACTIONS (2)
  - Off label use [Unknown]
  - Tic [Unknown]
